FAERS Safety Report 8201271-6 (Version None)
Quarter: 2012Q1

REPORT INFORMATION
  Report Type: 
  Country: None (occurrence: None)
  Receive Date: 20120312
  Receipt Date: 20120306
  Transmission Date: 20120608
  Serious: Yes (Death)
  Sender: FDA-Public Use
  Company Number: PHHY2012ZA020067

PATIENT
  Age: 55 Year
  Sex: Female

DRUGS (2)
  1. ZOLEDRONOC ACID [Suspect]
     Dosage: 5 MG/100 ML YEARLY
     Route: 042
     Dates: start: 20091101
  2. ZOLEDRONOC ACID [Suspect]
     Dosage: 5 MG/100 ML YEARLY
     Route: 042
     Dates: start: 20101101

REACTIONS (1)
  - MYOCARDIAL INFARCTION [None]
